FAERS Safety Report 14068908 (Version 1)
Quarter: 2017Q4

REPORT INFORMATION
  Report Type: Spontaneous
  Country: SI (occurrence: SI)
  Receive Date: 20171010
  Receipt Date: 20171010
  Transmission Date: 20180321
  Serious: Yes (Life-Threatening, Hospitalization, Disabling, Other)
  Sender: FDA-Public Use
  Company Number: PHHY2017SI148656

PATIENT
  Sex: Female

DRUGS (6)
  1. METADON [Concomitant]
     Active Substance: METHADONE HYDROCHLORIDE
     Indication: PRODUCT USED FOR UNKNOWN INDICATION
     Dosage: 18 MG, QD
     Route: 065
  2. SANVAL [Suspect]
     Active Substance: ZOLPIDEM TARTRATE
     Indication: INSOMNIA
     Dosage: PRESCRIBED DOSE IS 2*10 MG
     Route: 048
     Dates: start: 2011
  3. SANVAL [Suspect]
     Active Substance: ZOLPIDEM TARTRATE
     Dosage: HIGHER DOSE
     Route: 065
     Dates: start: 2015
  4. WELLBUTRIN [Concomitant]
     Active Substance: BUPROPION HYDROCHLORIDE
     Indication: PRODUCT USED FOR UNKNOWN INDICATION
     Dosage: 18 MG, QD
     Route: 065
  5. APAURIN [Concomitant]
     Active Substance: DIAZEPAM
     Indication: PRODUCT USED FOR UNKNOWN INDICATION
     Route: 065
  6. FRAXIPARIN [Concomitant]
     Active Substance: NADROPARIN CALCIUM
     Indication: PRODUCT USED FOR UNKNOWN INDICATION
     Route: 065
     Dates: start: 201609

REACTIONS (17)
  - Fatigue [Unknown]
  - Visual impairment [Unknown]
  - Off label use [Not Recovered/Not Resolved]
  - Thrombophlebitis [Recovered/Resolved]
  - Drug abuse [Not Recovered/Not Resolved]
  - Drug dependence [Not Recovered/Not Resolved]
  - Headache [Unknown]
  - Drug tolerance [Not Recovered/Not Resolved]
  - Overdose [Not Recovered/Not Resolved]
  - Deep vein thrombosis [Unknown]
  - Hallucination, visual [Unknown]
  - Hallucination, auditory [Unknown]
  - Loss of consciousness [Unknown]
  - Suicidal ideation [Recovered/Resolved]
  - Anaemia [Not Recovered/Not Resolved]
  - Sepsis [Recovered/Resolved]
  - Tachyarrhythmia [Unknown]

NARRATIVE: CASE EVENT DATE: 2015
